FAERS Safety Report 11309887 (Version 4)
Quarter: 2015Q4

REPORT INFORMATION
  Report Type: Spontaneous
  Country: US (occurrence: US)
  Receive Date: 20150724
  Receipt Date: 20151214
  Transmission Date: 20160304
  Serious: Yes (Hospitalization, Other)
  Sender: FDA-Public Use
  Company Number: US-GLAXOSMITHKLINE-US2015105253

PATIENT
  Age: 77 Year
  Sex: Female
  Weight: 181.41 kg

DRUGS (26)
  1. ADVAIR HFA [Suspect]
     Active Substance: FLUTICASONE PROPIONATE\SALMETEROL XINAFOATE
     Indication: CHRONIC OBSTRUCTIVE PULMONARY DISEASE
     Dosage: 2 PUFF(S), BID
     Route: 055
  2. DONNATAL [Concomitant]
     Active Substance: ATROPINE SULFATE\HYOSCYAMINE SULFATE\PHENOBARBITAL\SCOPOLAMINE HYDROBROMIDE
  3. GABAPENTIN. [Concomitant]
     Active Substance: GABAPENTIN
  4. VENTOLIN [Concomitant]
     Active Substance: ALBUTEROL SULFATE
  5. ATORVASTATIN [Concomitant]
     Active Substance: ATORVASTATIN
  6. FENOFIBRATE. [Concomitant]
     Active Substance: FENOFIBRATE
  7. METOPROLOL [Concomitant]
     Active Substance: METOPROLOL
  8. CIPRO [Concomitant]
     Active Substance: CIPROFLOXACIN HYDROCHLORIDE
  9. ASPIRIN. [Concomitant]
     Active Substance: ASPIRIN
  10. PANTOPRAZOLE [Concomitant]
     Active Substance: PANTOPRAZOLE SODIUM
  11. MIRALAX [Concomitant]
     Active Substance: POLYETHYLENE GLYCOL 3350
  12. LORAZEPAM. [Concomitant]
     Active Substance: LORAZEPAM
  13. ADVAIR HFA [Suspect]
     Active Substance: FLUTICASONE PROPIONATE\SALMETEROL XINAFOATE
     Indication: DYSPNOEA
  14. CALTRATE [Concomitant]
     Active Substance: CALCIUM CARBONATE
  15. FLUOXETINE [Concomitant]
     Active Substance: FLUOXETINE HYDROCHLORIDE
  16. LEVOTHYROXINE. [Concomitant]
     Active Substance: LEVOTHYROXINE
  17. SPIRONOLACTONE. [Concomitant]
     Active Substance: SPIRONOLACTONE
  18. VITAMIN B 100 COMPLEX [Concomitant]
  19. ATROPINE. [Concomitant]
     Active Substance: ATROPINE
  20. COUMADIN [Concomitant]
     Active Substance: WARFARIN SODIUM
  21. FLUCONAZOLE. [Concomitant]
     Active Substance: FLUCONAZOLE
  22. TORSEMIDE. [Concomitant]
     Active Substance: TORSEMIDE
  23. NOVOLIN INSULIN [Concomitant]
  24. TAMSULOSIN [Concomitant]
     Active Substance: TAMSULOSIN
  25. MORPHINE [Concomitant]
     Active Substance: MORPHINE
  26. CLARITIN [Concomitant]
     Active Substance: LORATADINE

REACTIONS (15)
  - Staphylococcal infection [Unknown]
  - Bedridden [Unknown]
  - Hospice care [Unknown]
  - Haemorrhage [Recovered/Resolved]
  - Diabetes mellitus [Not Recovered/Not Resolved]
  - Lymphoedema [Not Recovered/Not Resolved]
  - Catheter placement [Not Recovered/Not Resolved]
  - Pain [Recovered/Resolved]
  - General physical health deterioration [Not Recovered/Not Resolved]
  - Urinary tract infection [Recovering/Resolving]
  - Weight increased [Not Recovered/Not Resolved]
  - Kidney infection [Unknown]
  - Pneumonia [Recovered/Resolved]
  - Fungal infection [Not Recovered/Not Resolved]
  - Overweight [Not Recovered/Not Resolved]

NARRATIVE: CASE EVENT DATE: 2008
